FAERS Safety Report 9994884 (Version 1)
Quarter: 2014Q1

REPORT INFORMATION
  Report Type: Spontaneous
  Country: US (occurrence: US)
  Receive Date: 20140311
  Receipt Date: 20140311
  Transmission Date: 20141002
  Serious: Yes (Hospitalization)
  Sender: FDA-Public Use
  Company Number: US-BAYER-2014-035046

PATIENT
  Age: 21 Year
  Sex: Female
  Weight: 108.84 kg

DRUGS (8)
  1. YAZ [Suspect]
  2. YASMIN [Suspect]
     Indication: ORAL CONTRACEPTION
  3. OCELLA [Suspect]
  4. FLEXERIL [Concomitant]
     Indication: MUSCLE STRAIN
     Dosage: 5 TO 10 MG AT BEDTIME OR AS NEEDED, EVERY 8 HOURS
     Route: 048
  5. ZOLOFT [Concomitant]
     Indication: DEPRESSION
     Dosage: 100 MG, DAILY
     Route: 048
  6. ALLEGRA [Concomitant]
     Dosage: 180 MG, UNK
     Route: 048
  7. IBUPROFEN [Concomitant]
     Indication: HEADACHE
     Dosage: 400 MG, EVERY 4 TO 6 HOURS AS NEEDED
     Route: 048
  8. POTASSIUM GLUCONATE [Concomitant]

REACTIONS (1)
  - Deep vein thrombosis [None]
